FAERS Safety Report 26149788 (Version 1)
Quarter: 2025Q4

REPORT INFORMATION
  Report Type: Spontaneous
  Country: US (occurrence: None)
  Receive Date: 20251212
  Receipt Date: 20251212
  Transmission Date: 20260119
  Serious: Yes (Hospitalization)
  Sender: FDA-CTU
  Company Number: None

PATIENT
  Sex: Male
  Weight: 67.9 kg

DRUGS (1)
  1. PONATINIB [Suspect]
     Active Substance: PONATINIB
     Dates: end: 20251126

REACTIONS (3)
  - Cardiac failure [None]
  - Left ventricular dysfunction [None]
  - Cardiac failure congestive [None]

NARRATIVE: CASE EVENT DATE: 20251126
